FAERS Safety Report 8719267 (Version 3)
Quarter: 2013Q2

REPORT INFORMATION
  Report Type: Spontaneous
  Country: US (occurrence: US)
  Receive Date: 20120813
  Receipt Date: 20130502
  Transmission Date: 20140414
  Serious: No
  Sender: FDA-Public Use
  Company Number: US-009507513-1208USA004122

PATIENT
  Age: 45 Year
  Sex: Female
  Weight: 66.67 kg

DRUGS (1)
  1. PEGINTRON [Suspect]
     Indication: HEPATITIS C
     Dosage: 96 MICROGRAM PER 0.4ML, WEEKLY, REDIPEN
     Route: 058
     Dates: start: 20120717, end: 20120907

REACTIONS (6)
  - Contraindication to medical treatment [Unknown]
  - Nausea [Not Recovered/Not Resolved]
  - Anxiety [Not Recovered/Not Resolved]
  - Depression [Not Recovered/Not Resolved]
  - Product quality issue [Unknown]
  - Incorrect dose administered [Unknown]
